FAERS Safety Report 9776241 (Version 1)
Quarter: 2013Q4

REPORT INFORMATION
  Report Type: Spontaneous
  Country: US (occurrence: US)
  Receive Date: 20131220
  Receipt Date: 20131220
  Transmission Date: 20140711
  Serious: Yes (Other)
  Sender: FDA-Public Use
  Company Number: US-PFIZER INC-2013360156

PATIENT
  Age: 29 Year
  Sex: Male

DRUGS (6)
  1. LINEZOLID [Suspect]
     Indication: TUBERCULOSIS
     Dosage: 600 MG, DAILY
  2. LINEZOLID [Suspect]
     Dosage: 300 MG, DAILY
  3. ETHIONAMIDE [Suspect]
     Indication: TUBERCULOSIS
     Dosage: 500 MG, DAILY
  4. MOXIFLOXACIN [Suspect]
     Indication: TUBERCULOSIS
     Dosage: 400 MG, DAILY
  5. CYCLOSERINE [Suspect]
     Indication: TUBERCULOSIS
     Dosage: 500 MG, DAILY
  6. AMIKACIN [Suspect]
     Indication: TUBERCULOSIS
     Dosage: 1500 MG, WEEKLY

REACTIONS (3)
  - Deafness [Unknown]
  - Thrombocytopenia [Not Recovered/Not Resolved]
  - Abdominal discomfort [Unknown]
